FAERS Safety Report 13765630 (Version 2)
Quarter: 2017Q3

REPORT INFORMATION
  Report Type: Spontaneous
  Country: US (occurrence: US)
  Receive Date: 20170718
  Receipt Date: 20170803
  Transmission Date: 20171127
  Serious: Yes (Other)
  Sender: FDA-Public Use
  Company Number: US-ASTRAZENECA-2017SE71597

PATIENT
  Sex: Female
  Weight: 52.2 kg

DRUGS (2)
  1. FASLODEX [Suspect]
     Active Substance: FULVESTRANT
     Indication: HER-2 POSITIVE BREAST CANCER
     Dosage: MONTHLY
     Route: 030
     Dates: start: 2017
  2. TAMOXIFEN [Suspect]
     Active Substance: TAMOXIFEN
     Indication: BREAST CANCER
     Dosage: UNKNOWN
     Route: 048

REACTIONS (13)
  - Underweight [Unknown]
  - Intervertebral disc disorder [Unknown]
  - Headache [Unknown]
  - Hepatic lesion [Not Recovered/Not Resolved]
  - Body height decreased [Not Recovered/Not Resolved]
  - Lymphoma [Unknown]
  - Gait disturbance [Recovering/Resolving]
  - Weight decreased [Unknown]
  - Injection site pain [Recovered/Resolved]
  - Sciatic nerve neuropathy [Recovering/Resolving]
  - Decreased appetite [Unknown]
  - Dysgeusia [Unknown]
  - Stress [Unknown]
